FAERS Safety Report 7176985-X (Version None)
Quarter: 2010Q4

REPORT INFORMATION
  Report Type: 
  Country: None (occurrence: None)
  Receive Date: 20101220
  Receipt Date: 20101214
  Transmission Date: 20110411
  Serious: Yes (Other)
  Sender: FDA-Public Use
  Company Number: CA-JNJFOC-20101204773

PATIENT
  Age: 15 Year
  Sex: Female

DRUGS (1)
  1. TOPAMAX [Suspect]
     Indication: ILL-DEFINED DISORDER
     Route: 065
     Dates: start: 20101104

REACTIONS (1)
  - NYSTAGMUS [None]
